FAERS Safety Report 24446035 (Version 1)
Quarter: 2024Q4

REPORT INFORMATION
  Report Type: Spontaneous
  Country: US (occurrence: US)
  Receive Date: 20241016
  Receipt Date: 20241016
  Transmission Date: 20250114
  Serious: No
  Sender: Unknown Manufacturer
  Company Number: US-SHIELD THERAPEUTICS-US-STX-24-00189

PATIENT
  Age: 72 Year
  Sex: Female

DRUGS (2)
  1. ACCRUFER [Suspect]
     Active Substance: FERRIC MALTOL
     Indication: Iron deficiency anaemia
     Dosage: 30 MILLIGRAM, BID
     Route: 048
     Dates: start: 20240604
  2. ACCRUFER [Suspect]
     Active Substance: FERRIC MALTOL
     Indication: Chronic kidney disease
     Dosage: 30 MILLIGRAM, QD
     Route: 048

REACTIONS (2)
  - Nausea [Unknown]
  - Constipation [Unknown]
